FAERS Safety Report 5077760-2 (Version None)
Quarter: 2006Q3

REPORT INFORMATION
  Report Type: 
  Country: None (occurrence: None)
  Receive Date: 20060807
  Receipt Date: 20060726
  Transmission Date: 20061208
  Serious: Yes (Death)
  Sender: FDA-Public Use
  Company Number: CLOF-10298

PATIENT
  Age: 72 Year
  Sex: Male

DRUGS (1)
  1. CLOFARABINE [Suspect]
     Indication: CHRONIC MYELOMONOCYTIC LEUKAEMIA
     Dosage: 30 MG DAILY IV
     Route: 042
     Dates: start: 20060721, end: 20060721

REACTIONS (5)
  - ACIDOSIS [None]
  - DYSPNOEA [None]
  - GENERAL PHYSICAL HEALTH DETERIORATION [None]
  - HYPOTENSION [None]
  - RENAL IMPAIRMENT [None]
